FAERS Safety Report 9491687 (Version 1)
Quarter: 2013Q3

REPORT INFORMATION
  Report Type: Spontaneous
  Country: US (occurrence: US)
  Receive Date: 20130830
  Receipt Date: 20130830
  Transmission Date: 20140515
  Serious: Yes (Other)
  Sender: FDA-Public Use
  Company Number: US-NOVOPROD-385905

PATIENT
  Age: 21 Month
  Sex: 0
  Weight: 10 kg

DRUGS (2)
  1. NOVOSEVEN RT [Suspect]
     Indication: HYPOPLASTIC LEFT HEART SYNDROME
     Dosage: 120 UG/KG
  2. NOVOSEVEN RT [Suspect]
     Indication: MEDIASTINAL HAEMORRHAGE

REACTIONS (1)
  - Gastric disorder [Recovered/Resolved]
